FAERS Safety Report 18367170 (Version 1)
Quarter: 2020Q4

REPORT INFORMATION
  Report Type: Spontaneous
  Country: FR (occurrence: FR)
  Receive Date: 20201009
  Receipt Date: 20201009
  Transmission Date: 20210114
  Serious: Yes (Life-Threatening, Hospitalization)
  Sender: FDA-Public Use
  Company Number: FR-MYLANLABS-2020M1084986

PATIENT
  Age: 79 Year
  Sex: Male
  Weight: 75.5 kg

DRUGS (7)
  1. IRBESARTAN. [Suspect]
     Active Substance: IRBESARTAN
     Indication: HYPERTENSION
     Dosage: 150 MILLIGRAM, QD
     Route: 048
     Dates: end: 20200805
  2. HELICIDINE [Concomitant]
     Active Substance: ESCARGOT
     Dosage: UNK
  3. KARDEGIC [Interacting]
     Active Substance: ASPIRIN DL-LYSINE
     Indication: MYOCARDIAL INFARCTION
     Dosage: 75 MILLIGRAM, QD
     Route: 048
     Dates: start: 2014
  4. BISOPROLOL [Concomitant]
     Active Substance: BISOPROLOL
     Dosage: UNK
  5. SIMVASTATINE [Concomitant]
     Active Substance: SIMVASTATIN
     Dosage: UNK
  6. ALFUZOSINE                         /00975301/ [Concomitant]
     Active Substance: ALFUZOSIN
     Dosage: UNK
  7. XARELTO [Interacting]
     Active Substance: RIVAROXABAN
     Indication: MYOCARDIAL INFARCTION
     Dosage: 20 MILLIGRAM, QD
     Route: 048
     Dates: start: 201906, end: 20200728

REACTIONS (2)
  - Pericardial effusion [Recovered/Resolved]
  - Drug interaction [Unknown]

NARRATIVE: CASE EVENT DATE: 20200728
